FAERS Safety Report 6706116-9 (Version None)
Quarter: 2010Q2

REPORT INFORMATION
  Report Type: 
  Country: None (occurrence: None)
  Receive Date: 20100430
  Receipt Date: 20100430
  Transmission Date: 20101027
  Serious: No
  Sender: FDA-Public Use
  Company Number: None

PATIENT
  Sex: Male
  Weight: 153.3158 kg

DRUGS (2)
  1. LISINOPRIL [Suspect]
     Indication: HYPERTENSION
     Dosage: 40 MG BID PO
     Route: 048
     Dates: start: 20090301, end: 20100301
  2. LISINOPRIL [Suspect]
     Indication: NEPHROTIC SYNDROME
     Dosage: 40 MG BID PO
     Route: 048
     Dates: start: 20090301, end: 20100301

REACTIONS (1)
  - COUGH [None]
